FAERS Safety Report 14777584 (Version 1)
Quarter: 2018Q2

REPORT INFORMATION
  Report Type: Spontaneous
  Country: DE (occurrence: DE)
  Receive Date: 20180419
  Receipt Date: 20180419
  Transmission Date: 20180711
  Serious: Yes (Hospitalization, Other)
  Sender: FDA-Public Use
  Company Number: DE-WEST-WARD PHARMACEUTICALS CORP.-DE-H14001-18-03005

PATIENT
  Age: 67 Year
  Sex: Male
  Weight: 91 kg

DRUGS (18)
  1. CARBOPLATIN. [Suspect]
     Active Substance: CARBOPLATIN
     Indication: NON-SMALL CELL LUNG CANCER
     Dosage: 5 MG*MIN/ML ()
     Route: 041
     Dates: start: 20161124, end: 20170315
  2. ABRAXANE [Suspect]
     Active Substance: PACLITAXEL
     Dosage: 100 MG/M2
     Route: 041
     Dates: start: 20170222
  3. VENLAFAXIN [Concomitant]
     Active Substance: VENLAFAXINE HYDROCHLORIDE
     Indication: PROPHYLAXIS
     Dosage: 112.5 MILLIGRAM
     Route: 048
  4. NOVALGIN (ACETAMINOPHEN (+) CAFFEINE (+) PROPYPHENAZONE) [Concomitant]
     Active Substance: ACETAMINOPHEN\CAFFEINE\PROPYPHENAZONE
     Indication: RIB FRACTURE
     Route: 048
  5. BISOPROLOL [Concomitant]
     Active Substance: BISOPROLOL
     Indication: HYPERTONIA
     Dosage: 2.5 MILLIGRAM
     Route: 048
  6. ABRAXANE [Suspect]
     Active Substance: PACLITAXEL
     Dosage: 100 MG/M2
     Route: 041
     Dates: start: 20161124
  7. ELIQUIS [Concomitant]
     Active Substance: APIXABAN
     Indication: PROPHYLAXIS
     Dosage: 5 MILLIGRAM
     Route: 048
     Dates: start: 20161221, end: 20161221
  8. ABRAXANE [Suspect]
     Active Substance: PACLITAXEL
     Indication: NON-SMALL CELL LUNG CANCER
     Dosage: 100 MG/M2
     Route: 041
     Dates: start: 20170315, end: 20170329
  9. ERYPO [Concomitant]
     Indication: PROPHYLAXIS
     Dosage: 30 (INTERNATIONAL UNIT)
     Route: 058
     Dates: start: 20170118, end: 20170201
  10. NEBIVOLOL. [Concomitant]
     Active Substance: NEBIVOLOL
     Indication: PROPHYLAXIS
     Dosage: 10 MG
     Route: 048
  11. ABRAXANE [Suspect]
     Active Substance: PACLITAXEL
     Dosage: 100 MG/M2
     Route: 041
     Dates: start: 20170125
  12. TAVOR (LORAZEPAM) [Concomitant]
     Active Substance: LORAZEPAM
     Indication: PANIC ATTACK
     Route: 048
  13. VALORON [Concomitant]
     Active Substance: TILIDINE HYDROCHLORIDE
     Indication: RIB FRACTURE
     Dosage: 2 DOSAGE FORMS
     Route: 048
     Dates: start: 20170329
  14. DUODART [Concomitant]
     Active Substance: DUTASTERIDE\TAMSULOSIN
     Indication: PROPHYLAXIS
     Dosage: .5 MILLIGRAM
     Route: 048
  15. SEVREDOL [Concomitant]
     Active Substance: MORPHINE
     Indication: PROPHYLAXIS
     Route: 058
  16. LEVOFLOXACIN. [Concomitant]
     Active Substance: LEVOFLOXACIN
     Indication: PYREXIA
     Dosage: 1000 MILLIGRAM
     Route: 048
     Dates: start: 20170225, end: 20170302
  17. AMOCLAV [Concomitant]
     Active Substance: AMOXICILLIN\CLAVULANATE POTASSIUM
     Indication: PYREXIA
     Dosage: 1750 MILLIGRAM
     Route: 048
     Dates: start: 20161206, end: 20161213
  18. TOREM [Concomitant]
     Active Substance: TORSEMIDE
     Indication: PLEURAL EFFUSION
     Dosage: 10 MG
     Route: 048
     Dates: start: 20161214

REACTIONS (6)
  - Thrombocytopenia [Not Recovered/Not Resolved]
  - Pyrexia [Recovered/Resolved]
  - Haemoptysis [Recovered/Resolved]
  - Leukopenia [Not Recovered/Not Resolved]
  - Off label use [Unknown]
  - Syncope [Recovered/Resolved]

NARRATIVE: CASE EVENT DATE: 20170218
